FAERS Safety Report 8290764-1 (Version None)
Quarter: 2012Q2

REPORT INFORMATION
  Report Type: 
  Country: None (occurrence: None)
  Receive Date: 20120417
  Receipt Date: 20120410
  Transmission Date: 20120825
  Serious: Yes (Hospitalization)
  Sender: FDA-Public Use
  Company Number: US-US-EMD SERONO, INC.-7125521

PATIENT
  Sex: Male

DRUGS (5)
  1. REBIF [Suspect]
     Indication: PRODUCT USED FOR UNKNOWN INDICATION
     Route: 058
     Dates: start: 20060226
  2. NAPROXEN (ALEVE) [Concomitant]
     Indication: PREMEDICATION
  3. GABAPENTIN [Concomitant]
     Indication: PRODUCT USED FOR UNKNOWN INDICATION
     Dosage: FOUR YEARS
  4. TYLENOL (CAPLET) [Concomitant]
     Indication: PREMEDICATION
  5. DILANTIN [Concomitant]
     Indication: PRODUCT USED FOR UNKNOWN INDICATION

REACTIONS (5)
  - SPINAL COMPRESSION FRACTURE [None]
  - ANAEMIA [None]
  - ASTHENIA [None]
  - PYREXIA [None]
  - BALANCE DISORDER [None]
